FAERS Safety Report 16574681 (Version 1)
Quarter: 2019Q3

REPORT INFORMATION
  Report Type: Spontaneous
  Country: US (occurrence: US)
  Receive Date: 20190715
  Receipt Date: 20190715
  Transmission Date: 20191004
  Serious: No
  Sender: FDA-Public Use
  Company Number: US-NOVOPROD-645142

PATIENT
  Age: 55 Year
  Sex: Female

DRUGS (1)
  1. OZEMPIC [Suspect]
     Active Substance: SEMAGLUTIDE
     Indication: DIABETES MELLITUS
     Dosage: 1 MG
     Route: 058
     Dates: start: 201811

REACTIONS (12)
  - Dyspnoea [Recovering/Resolving]
  - Chest discomfort [Recovering/Resolving]
  - Photophobia [Not Recovered/Not Resolved]
  - Device malfunction [Not Recovered/Not Resolved]
  - Product quality issue [Not Recovered/Not Resolved]
  - Device leakage [Unknown]
  - Headache [Recovering/Resolving]
  - Hyperhidrosis [Not Recovered/Not Resolved]
  - Vitreous floaters [Recovering/Resolving]
  - Ocular discomfort [Recovering/Resolving]
  - Constipation [Recovering/Resolving]
  - Abdominal pain upper [Recovering/Resolving]

NARRATIVE: CASE EVENT DATE: 20181101
